FAERS Safety Report 17842358 (Version 1)
Quarter: 2020Q2

REPORT INFORMATION
  Report Type: Spontaneous
  Country: US (occurrence: US)
  Receive Date: 20200529
  Receipt Date: 20200529
  Transmission Date: 20200714
  Serious: No
  Sender: FDA-Public Use
  Company Number: US-ACTELION-A-NJ2019-199565

PATIENT
  Age: 47 Year
  Sex: Female

DRUGS (2)
  1. OPSUMIT [Suspect]
     Active Substance: MACITENTAN
     Indication: PULMONARY ARTERIAL HYPERTENSION
     Dosage: 10 MG, QD
     Route: 048
     Dates: start: 20091111
  2. REMODULIN [Concomitant]
     Active Substance: TREPROSTINIL

REACTIONS (7)
  - Abdominal distension [Recovering/Resolving]
  - Nasal congestion [Recovering/Resolving]
  - Catheter site erythema [Unknown]
  - Catheter site discharge [Unknown]
  - Catheter site pain [Unknown]
  - Headache [Recovering/Resolving]
  - Catheter site inflammation [Unknown]

NARRATIVE: CASE EVENT DATE: 201911
